FAERS Safety Report 21700669 (Version 2)
Quarter: 2023Q1

REPORT INFORMATION
  Report Type: Spontaneous
  Country: US (occurrence: US)
  Receive Date: 20221208
  Receipt Date: 20230310
  Transmission Date: 20230417
  Serious: Yes (Hospitalization, Other)
  Sender: FDA-Public Use
  Company Number: US-BRISTOL-MYERS SQUIBB COMPANY-2022-145567

PATIENT
  Age: 79 Year
  Sex: Male

DRUGS (46)
  1. LENALIDOMIDE [Suspect]
     Active Substance: LENALIDOMIDE
     Indication: Diffuse large B-cell lymphoma
     Dosage: FREQ - 21 UNSPECIFIED
  2. LENALIDOMIDE [Suspect]
     Active Substance: LENALIDOMIDE
     Dosage: FREQ - 21 UNSPECIFIED
     Route: 048
     Dates: end: 20220502
  3. LENALIDOMIDE [Suspect]
     Active Substance: LENALIDOMIDE
     Dosage: UNKNOWN DOSE
  4. MONJUVI [Suspect]
     Active Substance: TAFASITAMAB-CXIX
     Indication: Diffuse large B-cell lymphoma
     Dosage: ONE TIME ONLY
     Route: 042
  5. MONJUVI [Suspect]
     Active Substance: TAFASITAMAB-CXIX
     Route: 042
  6. MONJUVI [Suspect]
     Active Substance: TAFASITAMAB-CXIX
     Route: 042
     Dates: end: 20220502
  7. DOXORUBICIN [Concomitant]
     Active Substance: DOXORUBICIN
     Indication: Product used for unknown indication
     Dosage: 263.466 MG/M2 (670 MG) (48% OF 550 MG/M2)
  8. ACETAMINOPHEN [Concomitant]
     Active Substance: ACETAMINOPHEN
     Indication: Premedication
     Dosage: ONE TIME
     Route: 048
  9. BENADRYL [Concomitant]
     Active Substance: DIPHENHYDRAMINE HYDROCHLORIDE
     Indication: Premedication
     Dosage: ONE TIME
  10. FAMOTIDINE [Concomitant]
     Active Substance: FAMOTIDINE
     Indication: Premedication
     Dosage: 20 MG/2 ML
  11. DECADRON [Concomitant]
     Active Substance: DEXAMETHASONE
     Indication: Premedication
     Dosage: ONE TIME
     Route: 042
  12. DECADRON [Concomitant]
     Active Substance: DEXAMETHASONE
     Dosage: ONE TIME
     Route: 042
  13. DECADRON [Concomitant]
     Active Substance: DEXAMETHASONE
     Dosage: ONE TIME
     Route: 042
  14. DECADRON [Concomitant]
     Active Substance: DEXAMETHASONE
     Dosage: ONE TIME
     Route: 042
  15. TYLENOL [Concomitant]
     Active Substance: ACETAMINOPHEN
     Indication: Product used for unknown indication
     Route: 048
     Dates: end: 20220725
  16. ZYLOPRIM [Concomitant]
     Active Substance: ALLOPURINOL
     Indication: Product used for unknown indication
     Route: 048
  17. ELIQUIS [Concomitant]
     Active Substance: APIXABAN
     Indication: Product used for unknown indication
     Route: 048
     Dates: start: 20220405, end: 20220810
  18. FLIPTOR [Concomitant]
     Indication: Product used for unknown indication
     Route: 048
     Dates: start: 20211129, end: 20220725
  19. LUMIGAN [Concomitant]
     Active Substance: BIMATOPROST
     Indication: Product used for unknown indication
     Dosage: 1 DROP BOTH EYES IN EVENING
     Dates: start: 20220414, end: 20230210
  20. LUMIGAN [Concomitant]
     Active Substance: BIMATOPROST
     Dosage: 1 DROP BOTH EYES BEDTIME
     Dates: start: 20210720, end: 20220720
  21. LUMIGAN [Concomitant]
     Active Substance: BIMATOPROST
     Dosage: 1 DROP
     Dates: end: 20220725
  22. SIMBRINZA [Concomitant]
     Active Substance: BRIMONIDINE TARTRATE\BRINZOLAMIDE
     Indication: Product used for unknown indication
     Dosage: 1-0.2%, 1 DROP IN BOTH EYES
     Dates: start: 20210720, end: 20220720
  23. SIMBRINZA [Concomitant]
     Active Substance: BRIMONIDINE TARTRATE\BRINZOLAMIDE
     Dosage: 1-0.2%, 1 DROP IN BOTH EYES
     Dates: start: 20220118, end: 20220812
  24. DULCOLAX STOOL SOFTENER [Concomitant]
     Active Substance: DOCUSATE SODIUM
     Indication: Product used for unknown indication
     Dosage: AS NEEDED
     Route: 048
     Dates: end: 20220812
  25. VITAMIN D2 [Concomitant]
     Active Substance: ERGOCALCIFEROL
     Indication: Product used for unknown indication
     Dosage: 50000 UNITS, 1 CAPSULE BY MOUTH EVERY 7 DAYS
     Route: 048
     Dates: start: 20210608, end: 20220608
  26. VITAMIN D2 [Concomitant]
     Active Substance: ERGOCALCIFEROL
     Dosage: 50000 UNITS
     Dates: start: 20210727, end: 20220725
  27. LIDEX [Concomitant]
     Active Substance: FLUOCINONIDE
     Indication: Product used for unknown indication
  28. LASIX [Concomitant]
     Active Substance: FUROSEMIDE
     Indication: Product used for unknown indication
     Route: 048
  29. NIZORAL [Concomitant]
     Active Substance: KETOCONAZOLE
     Indication: Product used for unknown indication
     Dates: start: 20220318, end: 20220725
  30. XALATAN [Concomitant]
     Active Substance: LATANOPROST
     Indication: Product used for unknown indication
     Dosage: 1 DROP IN EACH EYE AT BEDTIME
     Dates: start: 20220318, end: 20220725
  31. LEVAQUIN [Concomitant]
     Active Substance: LEVOFLOXACIN
     Indication: Product used for unknown indication
     Dosage: DAILY FOR 5 DAYS
     Route: 048
     Dates: start: 20220502, end: 20220507
  32. EMLA [Concomitant]
     Active Substance: LIDOCAINE\PRILOCAINE
     Indication: Product used for unknown indication
     Dosage: 2.5%-2.5% ONCE DAILY AS NEEDED
     Dates: start: 20211102, end: 20220725
  33. TOPROL XL [Concomitant]
     Active Substance: METOPROLOL SUCCINATE
     Indication: Product used for unknown indication
     Dosage: EXTENDED-RELEASE TABLET
     Route: 048
     Dates: start: 20220316, end: 20220810
  34. NARCAN [Concomitant]
     Active Substance: NALOXONE HYDROCHLORIDE
     Indication: Product used for unknown indication
     Dosage: 1 SPRAY IN ONE NOSTRIL ONE TIME
     Dates: start: 20210221, end: 20220725
  35. NITROSTAT [Concomitant]
     Active Substance: NITROGLYCERIN
     Indication: Product used for unknown indication
     Dates: start: 20200115, end: 20220810
  36. ZOFRAN [Concomitant]
     Active Substance: ONDANSETRON HYDROCHLORIDE
     Indication: Nausea
     Route: 048
     Dates: start: 20211102, end: 20220725
  37. COLYTE [MACROGOL 3350;POTASSIUM CHLORIDE;SODIUM BICARBONATE;SODIUM CHL [Concomitant]
     Indication: Product used for unknown indication
     Dosage: 240-22.72-6.72-5.84 GRAM
     Dates: start: 20210901, end: 20220725
  38. COMPAZINE [Concomitant]
     Active Substance: PROCHLORPERAZINE MALEATE
     Indication: Product used for unknown indication
     Route: 048
     Dates: start: 20211102, end: 20220725
  39. ALDACTONE [Concomitant]
     Active Substance: SPIRONOLACTONE
     Indication: Hypertension
     Route: 048
     Dates: start: 20210611, end: 20220611
  40. ALDACTONE [Concomitant]
     Active Substance: SPIRONOLACTONE
     Route: 048
     Dates: start: 20210531, end: 20210531
  41. ALDACTONE [Concomitant]
     Active Substance: SPIRONOLACTONE
     Route: 048
     Dates: start: 20220301, end: 20220630
  42. BACTRIM DS [Concomitant]
     Active Substance: SULFAMETHOXAZOLE\TRIMETHOPRIM
     Indication: Product used for unknown indication
     Dosage: 800-160 MG
     Route: 048
     Dates: start: 20210608, end: 20220608
  43. BACTRIM DS [Concomitant]
     Active Substance: SULFAMETHOXAZOLE\TRIMETHOPRIM
     Dosage: 800-160 MG
     Route: 048
     Dates: start: 20210708, end: 20220705
  44. ULTRAM [Concomitant]
     Active Substance: TRAMADOL HYDROCHLORIDE
     Indication: Pain
     Dosage: 3 TABLETS BY MOUTH EVERY 6 HOURS AS NEEDED
     Route: 048
  45. VALTREX [Concomitant]
     Active Substance: VALACYCLOVIR HYDROCHLORIDE
     Indication: Product used for unknown indication
     Route: 048
     Dates: start: 20210810, end: 20220627
  46. VALTREX [Concomitant]
     Active Substance: VALACYCLOVIR HYDROCHLORIDE
     Route: 048
     Dates: start: 20211227, end: 20220627

REACTIONS (8)
  - Incarcerated inguinal hernia [Unknown]
  - Off label use [Unknown]
  - Pain in extremity [Unknown]
  - Cytopenia [Unknown]
  - Neutropenia [Unknown]
  - Asthenia [Unknown]
  - Diffuse large B-cell lymphoma recurrent [Unknown]
  - Myelodysplastic syndrome [Unknown]
